FAERS Safety Report 4404801-5 (Version None)
Quarter: 2004Q3

REPORT INFORMATION
  Report Type: 
  Country: None (occurrence: None)
  Receive Date: 20040720
  Receipt Date: 20040707
  Transmission Date: 20050211
  Serious: Yes (Hospitalization)
  Sender: FDA-Public Use
  Company Number: 2004042233

PATIENT
  Age: 69 Year
  Sex: Female

DRUGS (6)
  1. LIPITOR [Suspect]
     Indication: HYPERLIPIDAEMIA
     Dosage: 5 MG (1 IN 1 D), ORAL
     Route: 048
     Dates: start: 20010406
  2. ACETAMINOPHEN [Suspect]
     Indication: NASOPHARYNGITIS
     Dosage: 1200 MG (3 IN 1 D), ORAL
     Route: 048
     Dates: start: 20040602
  3. TRANEXAMIC ACID (TRANEXAMIC ACID) [Suspect]
     Indication: NASOPHARYNGITIS
     Dosage: 750 MG (3 IN 1 D), ORAL
     Route: 048
     Dates: start: 20040602
  4. METOPROLOL TARTRATE [Concomitant]
  5. AMLODIPINE BESYLATE [Concomitant]
  6. BROTIZOLAM (BROTIZOLAM) [Concomitant]

REACTIONS (9)
  - ASPARTATE AMINOTRANSFERASE INCREASED [None]
  - BLOOD ALKALINE PHOSPHATASE INCREASED [None]
  - BLOOD CREATINE PHOSPHOKINASE INCREASED [None]
  - DEHYDRATION [None]
  - DEPRESSED LEVEL OF CONSCIOUSNESS [None]
  - DISORIENTATION [None]
  - LIVER DISORDER [None]
  - MYALGIA [None]
  - NASOPHARYNGITIS [None]
